APPROVED DRUG PRODUCT: MINOXIDIL EXTRA STRENGTH (FOR MEN)
Active Ingredient: MINOXIDIL
Strength: 5%
Dosage Form/Route: SOLUTION;TOPICAL
Application: A075438 | Product #001
Applicant: AUROBINDO PHARMA LTD
Approved: Feb 27, 2003 | RLD: No | RS: No | Type: OTC